FAERS Safety Report 23081823 (Version 2)
Quarter: 2023Q4

REPORT INFORMATION
  Report Type: Spontaneous
  Country: JP (occurrence: JP)
  Receive Date: 20231019
  Receipt Date: 20231026
  Transmission Date: 20240110
  Serious: Yes (Other)
  Sender: FDA-Public Use
  Company Number: JP-BEH-2023163249

PATIENT
  Age: 83 Year
  Sex: Male
  Weight: 46 kg

DRUGS (1)
  1. ALBUMINAR-25 [Suspect]
     Active Substance: ALBUMIN HUMAN
     Indication: Hypoalbuminaemia
     Dosage: 1 VIAL (V), FREQUENCY: DURING DIALYSIS
     Route: 041
     Dates: start: 20230908, end: 20230914

REACTIONS (2)
  - Thrombocytopenia [Recovering/Resolving]
  - Sepsis [Fatal]

NARRATIVE: CASE EVENT DATE: 20230911
